FAERS Safety Report 13797863 (Version 1)
Quarter: 2017Q3

REPORT INFORMATION
  Report Type: Spontaneous
  Country: US (occurrence: US)
  Receive Date: 20170726
  Receipt Date: 20170726
  Transmission Date: 20171127
  Serious: Yes (Other)
  Sender: FDA-Public Use
  Company Number: None

PATIENT
  Age: 58 Year
  Sex: Female
  Weight: 68 kg

DRUGS (1)
  1. REPATHA [Suspect]
     Active Substance: EVOLOCUMAB
     Indication: HYPERLIPIDAEMIA
     Route: 058
     Dates: start: 20170522, end: 20170717

REACTIONS (6)
  - Agitation [None]
  - Pruritus [None]
  - Palpitations [None]
  - Dyspnoea [None]
  - Wrong technique in product usage process [None]
  - Rash [None]

NARRATIVE: CASE EVENT DATE: 20170630
